FAERS Safety Report 8305078-0 (Version None)
Quarter: 2012Q1

REPORT INFORMATION
  Report Type: 
  Country: None (occurrence: None)
  Receive Date: 20120326
  Receipt Date: 20111114
  Transmission Date: 20120608
  Serious: Yes (Other)
  Sender: FDA-Public Use
  Company Number: PHHY2011US26575

PATIENT
  Age: 63 Year
  Sex: Female

DRUGS (19)
  1. HYALURONIC ACID (HYALURONIC ACID) [Concomitant]
  2. OXYCONTIN [Concomitant]
  3. CARTIA XT [Concomitant]
  4. CLARITIN-D [Concomitant]
  5. TASIGNA [Suspect]
     Indication: CHRONIC MYELOID LEUKAEMIA
     Dosage: 400 MG, Q12H, ORAL
     Route: 048
     Dates: start: 20080111
  6. XANAX [Concomitant]
  7. VITAMIN E [Concomitant]
  8. SINGULAIR [Concomitant]
  9. PROMETHAZINE [Concomitant]
  10. VITAMIN D [Concomitant]
  11. CITRUCEL (METHYLCELLULOSE) [Concomitant]
  12. FLONASE [Concomitant]
  13. REMERON [Concomitant]
  14. CLIMARA [Concomitant]
  15. SYNTHROID [Concomitant]
  16. GLUCOSAMINE (GLUCOSAMINE) [Concomitant]
  17. B COMPLEX (NICOTINAMIDE, PYRIDOXINE HYDROCHLORIDE, RIBOFLAVIN, THIAMIN [Concomitant]
  18. ADVAIR HFA [Concomitant]
  19. FLAXSEED OIL (LINUM USITATISSIMUM SEED OIL) [Concomitant]

REACTIONS (7)
  - WEIGHT DECREASED [None]
  - DECREASED APPETITE [None]
  - AMNESIA [None]
  - ATTENTION DEFICIT/HYPERACTIVITY DISORDER [None]
  - CONCOMITANT DISEASE AGGRAVATED [None]
  - OEDEMA PERIPHERAL [None]
  - FLUID RETENTION [None]
